FAERS Safety Report 23385216 (Version 1)
Quarter: 2024Q1

REPORT INFORMATION
  Report Type: Spontaneous
  Country: DK (occurrence: DK)
  Receive Date: 20240110
  Receipt Date: 20240110
  Transmission Date: 20240409
  Serious: Yes (Hospitalization, Other)
  Sender: FDA-Public Use
  Company Number: None

PATIENT
  Age: 68 Year
  Sex: Female

DRUGS (1)
  1. OPDIVO [Suspect]
     Active Substance: NIVOLUMAB
     Indication: Malignant melanoma
     Dosage: DOSAGE: 480 MG WITH UNKNOWN INTERVALS. LAST INJECTION WAS GIVEN ON 01DEC2023. STRENGTH: 100 MG/10 ML
     Dates: start: 20230330, end: 20231222

REACTIONS (3)
  - Dysphagia [Unknown]
  - Gastric stenosis [Not Recovered/Not Resolved]
  - Gastritis [Not Recovered/Not Resolved]

NARRATIVE: CASE EVENT DATE: 20230101
